FAERS Safety Report 7463348-2 (Version None)
Quarter: 2011Q2

REPORT INFORMATION
  Report Type: 
  Country: None (occurrence: None)
  Receive Date: 20110506
  Receipt Date: 20110503
  Transmission Date: 20111010
  Serious: Yes (Life-Threatening, Hospitalization)
  Sender: FDA-Public Use
  Company Number: FR-PFIZER INC-2011074172

PATIENT
  Age: 77 Year
  Sex: Female
  Weight: 55 kg

DRUGS (1)
  1. SUTENT [Suspect]
     Indication: RENAL CANCER METASTATIC
     Dosage: 50 MG, 1X/DAY
     Route: 048
     Dates: start: 20110307, end: 20110317

REACTIONS (4)
  - LYMPHOPENIA [None]
  - CARDIOGENIC SHOCK [None]
  - THROMBOCYTOPENIA [None]
  - NEUTROPENIA [None]
